FAERS Safety Report 18124977 (Version 1)
Quarter: 2020Q3

REPORT INFORMATION
  Report Type: Spontaneous
  Country: TR (occurrence: TR)
  Receive Date: 20200807
  Receipt Date: 20200807
  Transmission Date: 20201103
  Serious: Yes (Hospitalization, Other)
  Sender: FDA-Public Use
  Company Number: TR-FERRINGPH-2020FE05077

PATIENT
  Age: 78 Year
  Sex: Female

DRUGS (1)
  1. DESMOPRESSIN [Suspect]
     Active Substance: DESMOPRESSIN
     Indication: URINARY INCONTINENCE
     Dosage: 0.2 MG, DAILY
     Route: 065

REACTIONS (4)
  - Product use in unapproved indication [Recovered/Resolved]
  - Pulmonary oedema [Recovered/Resolved]
  - Labelled drug-drug interaction medication error [Recovered/Resolved]
  - Contraindicated product administered [Recovered/Resolved]
